FAERS Safety Report 5992966-3 (Version None)
Quarter: 2008Q4

REPORT INFORMATION
  Report Type: 
  Country: None (occurrence: None)
  Receive Date: 20081210
  Receipt Date: 20081126
  Transmission Date: 20090506
  Serious: Yes (Other)
  Sender: FDA-Public Use
  Company Number: PAR_02354_2008

PATIENT
  Sex: Female
  Weight: 54.4316 kg

DRUGS (21)
  1. MEGESTROL ACETATE [Suspect]
     Indication: DECREASED APPETITE
     Dosage: (10 ML ORAL)
     Route: 048
     Dates: start: 20080902, end: 20080917
  2. NOVOLOG [Concomitant]
  3. PREDNISONE TAB [Concomitant]
  4. POTASSIUM CHLORIDE [Concomitant]
  5. BISCOLAX [Concomitant]
  6. MILK OF MAGNESIA [Concomitant]
  7. MAPAP [Concomitant]
  8. TUSSIN DM [Concomitant]
  9. LANTUS [Concomitant]
  10. LIQUACEL SUPPLEMENT [Concomitant]
  11. OMEPRAZOLE [Concomitant]
  12. LEVOTHYROXINE SODIUM [Concomitant]
  13. DIGOXIN [Concomitant]
  14. AMIODARONE HCL [Concomitant]
  15. STRESS FORMULA WITH ZINC [Concomitant]
  16. FLUDROCORTISONE ACETATE [Concomitant]
  17. BOOST DIABETIC [Concomitant]
  18. ALBUTEROL [Concomitant]
  19. DC-240 [Concomitant]
  20. SINGULAIR [Concomitant]
  21. ARICEPT [Concomitant]

REACTIONS (2)
  - DEEP VEIN THROMBOSIS [None]
  - PULMONARY EMBOLISM [None]
